FAERS Safety Report 12448635 (Version 1)
Quarter: 2016Q2

REPORT INFORMATION
  Report Type: Spontaneous
  Country: US (occurrence: US)
  Receive Date: 20160608
  Receipt Date: 20160608
  Transmission Date: 20160815
  Serious: Yes (Hospitalization, Other)
  Sender: FDA-Public Use
  Company Number: US-BEH-2016070065

PATIENT
  Age: 60 Year
  Sex: Female

DRUGS (1)
  1. STIMATE [Suspect]
     Active Substance: DESMOPRESSIN ACETATE
     Indication: VON WILLEBRAND^S DISEASE
     Dosage: 2 SPRAYS 2 HOURS BEFORE PROCEDURE
     Route: 045
     Dates: start: 20121008

REACTIONS (2)
  - Colon cancer [Unknown]
  - Colon operation [Unknown]

NARRATIVE: CASE EVENT DATE: 20121130
